FAERS Safety Report 11428512 (Version 1)
Quarter: 2015Q3

REPORT INFORMATION
  Report Type: Spontaneous
  Country: US (occurrence: US)
  Receive Date: 20150828
  Receipt Date: 20150828
  Transmission Date: 20151125
  Serious: No
  Sender: FDA-Public Use
  Company Number: US-ROCHE-1226758

PATIENT
  Sex: Male

DRUGS (7)
  1. OXYCODON [Concomitant]
     Active Substance: OXYCODONE
     Route: 065
  2. PRILOSEC [Concomitant]
     Active Substance: OMEPRAZOLE MAGNESIUM
     Route: 065
  3. LISINOPRIL. [Concomitant]
     Active Substance: LISINOPRIL
     Route: 065
  4. METFORMIN [Concomitant]
     Active Substance: METFORMIN HYDROCHLORIDE
     Route: 065
  5. PEGASYS [Suspect]
     Active Substance: PEGINTERFERON ALFA-2A
     Indication: HEPATITIS C
     Route: 065
     Dates: start: 20130513
  6. GLYBURIDE. [Concomitant]
     Active Substance: GLYBURIDE
  7. RIBAVIRIN. [Suspect]
     Active Substance: RIBAVIRIN
     Indication: HEPATITIS C
     Route: 065
     Dates: start: 20130513

REACTIONS (13)
  - Pruritus [Unknown]
  - Peripheral swelling [Recovered/Resolved]
  - Nausea [Unknown]
  - Musculoskeletal pain [Unknown]
  - Hypersomnia [Unknown]
  - Back pain [Unknown]
  - Chest pain [Unknown]
  - Vision blurred [Unknown]
  - Fatigue [Unknown]
  - Influenza like illness [Unknown]
  - Constipation [Unknown]
  - Joint swelling [Recovered/Resolved]
  - Headache [Unknown]
